FAERS Safety Report 10555953 (Version 1)
Quarter: 2014Q4

REPORT INFORMATION
  Report Type: Report from Study
  Country: US (occurrence: US)
  Receive Date: 20141030
  Receipt Date: 20141030
  Transmission Date: 20150529
  Serious: No
  Sender: FDA-Public Use
  Company Number: US-AMGEN-USASL2014082979

PATIENT
  Sex: Female
  Weight: 158.73 kg

DRUGS (2)
  1. ENBREL [Suspect]
     Active Substance: ETANERCEPT
     Indication: PSORIATIC ARTHROPATHY
  2. ENBREL [Suspect]
     Active Substance: ETANERCEPT
     Indication: RHEUMATOID ARTHRITIS
     Dosage: UNK UNK, QWK
     Route: 058
     Dates: start: 20140930

REACTIONS (5)
  - Pruritus [Unknown]
  - Headache [Unknown]
  - Injection site rash [Unknown]
  - Injection site bruising [Unknown]
  - Rash pustular [Unknown]

NARRATIVE: CASE EVENT DATE: 2014
